FAERS Safety Report 20913467 (Version 1)
Quarter: 2022Q2

REPORT INFORMATION
  Report Type: Spontaneous
  Country: US (occurrence: US)
  Receive Date: 20220603
  Receipt Date: 20220603
  Transmission Date: 20220721
  Serious: Yes (Death)
  Sender: FDA-Public Use
  Company Number: US-SA-200314918GDDC

PATIENT
  Age: 52 Year
  Sex: Male

DRUGS (2)
  1. DILTIAZEM HYDROCHLORIDE [Suspect]
     Active Substance: DILTIAZEM HYDROCHLORIDE
     Indication: Ill-defined disorder
     Route: 048
     Dates: start: 2000, end: 2000
  2. METFORMIN HYDROCHLORIDE [Suspect]
     Active Substance: METFORMIN HYDROCHLORIDE
     Indication: Ill-defined disorder
     Dosage: INGESTED UP TO 40 METFORMIN 500 MG TABLETS
     Route: 048
     Dates: end: 2000

REACTIONS (8)
  - Suicide attempt [Fatal]
  - Somnolence [Fatal]
  - Respiratory rate decreased [Fatal]
  - Lactic acidosis [Fatal]
  - Hypotension [Fatal]
  - Bradycardia [Fatal]
  - Heart rate decreased [Fatal]
  - Intentional overdose [Fatal]
